FAERS Safety Report 4560768-0 (Version None)
Quarter: 2005Q1

REPORT INFORMATION
  Report Type: 
  Country: None (occurrence: None)
  Receive Date: 20050124
  Receipt Date: 20050112
  Transmission Date: 20050727
  Serious: Yes (Disabling, Other)
  Sender: FDA-Public Use
  Company Number: HQWYE604212JAN05

PATIENT
  Age: 52 Year
  Sex: Female

DRUGS (4)
  1. INDERAL [Suspect]
     Indication: TACHYCARDIA
     Dosage: 20 MG 3X PER 1 DAY ORAL
     Route: 048
     Dates: start: 19820101, end: 20040831
  2. INDERAL [Suspect]
     Indication: TACHYCARDIA
     Dosage: 20 MG 3X PER 1 DAY ORAL
     Route: 048
     Dates: start: 20041006
  3. PROPRANOLOL [Suspect]
     Indication: TACHYCARDIA
     Dosage: 60 MG DAILY; 20 MG PRN
     Dates: start: 20040901, end: 20040919
  4. PROPRANOLOL [Suspect]
     Indication: TACHYCARDIA
     Dosage: 60 MG DAILY; 20 MG PRN
     Dates: start: 20040901

REACTIONS (8)
  - CHILLS [None]
  - CONSTIPATION [None]
  - CONVULSION [None]
  - DIZZINESS [None]
  - DRUG EFFECT INCREASED [None]
  - FLATULENCE [None]
  - OVERDOSE [None]
  - PHARMACEUTICAL PRODUCT COMPLAINT [None]
